FAERS Safety Report 6809728-7 (Version None)
Quarter: 2010Q2

REPORT INFORMATION
  Report Type: 
  Country: None (occurrence: None)
  Receive Date: 20100630
  Receipt Date: 20100618
  Transmission Date: 20101027
  Serious: Yes (Hospitalization)
  Sender: FDA-Public Use
  Company Number: US-GILEAD-2010-0029943

PATIENT
  Sex: Male

DRUGS (3)
  1. TRUVADA [Suspect]
     Indication: HIV INFECTION
     Dates: start: 20090602
  2. EFAVIRENZ [Suspect]
     Indication: HIV INFECTION
     Dates: start: 20090602
  3. XANAX [Concomitant]

REACTIONS (1)
  - WRIST FRACTURE [None]
